FAERS Safety Report 6748935-9 (Version None)
Quarter: 2010Q2

REPORT INFORMATION
  Report Type: 
  Country: None (occurrence: None)
  Receive Date: 20100601
  Receipt Date: 20100518
  Transmission Date: 20101027
  Serious: Yes (Hospitalization)
  Sender: FDA-Public Use
  Company Number: GB-RANBAXY-2010RR-34067

PATIENT
  Age: 2 Month
  Sex: Male

DRUGS (3)
  1. AMOXICILLIN [Suspect]
     Dosage: UNK
     Dates: start: 20100101
  2. CEFTRIAXONE [Suspect]
     Dosage: UNK
     Dates: start: 20100101
  3. PREVENAR 13 [Suspect]
     Indication: IMMUNISATION
     Dosage: UNK
     Dates: start: 20100416, end: 20100416

REACTIONS (6)
  - COLITIS [None]
  - CONDITION AGGRAVATED [None]
  - DIARRHOEA [None]
  - FREQUENT BOWEL MOVEMENTS [None]
  - HAEMATOCHEZIA [None]
  - MUCOUS STOOLS [None]
